FAERS Safety Report 16936018 (Version 3)
Quarter: 2020Q4

REPORT INFORMATION
  Report Type: Spontaneous
  Country: US (occurrence: US)
  Receive Date: 20191018
  Receipt Date: 20201021
  Transmission Date: 20210113
  Serious: Yes (Other)
  Sender: FDA-Public Use
  Company Number: US-INSMED, INC.-US-INS-19-02830

PATIENT
  Age: 70 Year
  Sex: Female
  Weight: 57.2 kg

DRUGS (2)
  1. ARIKAYCE [Suspect]
     Active Substance: AMIKACIN
     Indication: CYSTIC FIBROSIS
  2. ARIKAYCE [Suspect]
     Active Substance: AMIKACIN
     Indication: MYCOBACTERIAL INFECTION
     Route: 055
     Dates: start: 20190208

REACTIONS (11)
  - Cystitis [Unknown]
  - Dizziness [Unknown]
  - Throat tightness [Unknown]
  - Condition aggravated [Recovering/Resolving]
  - Bowel movement irregularity [Recovering/Resolving]
  - Illness [Recovering/Resolving]
  - Oropharyngeal pain [Unknown]
  - Drug intolerance [Not Recovered/Not Resolved]
  - Product dose omission issue [Unknown]
  - Deafness [Unknown]
  - Throat irritation [Unknown]

NARRATIVE: CASE EVENT DATE: 201910
